FAERS Safety Report 19628725 (Version 1)
Quarter: 2021Q3

REPORT INFORMATION
  Report Type: Spontaneous
  Country: US (occurrence: US)
  Receive Date: 20210729
  Receipt Date: 20210729
  Transmission Date: 20211014
  Serious: Yes (Life-Threatening, Hospitalization, Other)
  Sender: FDA-Public Use
  Company Number: None

PATIENT
  Age: 37 Year
  Sex: Female
  Weight: 106.4 kg

DRUGS (1)
  1. FULPHILA [Suspect]
     Active Substance: PEGFILGRASTIM-JMDB
     Dosage: ?          OTHER FREQUENCY:Q2WEEKS;?
     Route: 058
     Dates: start: 20210724, end: 20210724

REACTIONS (5)
  - Pain [None]
  - Dyspnoea [None]
  - Pain in extremity [None]
  - Injection site erythema [None]
  - Cardio-respiratory arrest [None]

NARRATIVE: CASE EVENT DATE: 20210724
